FAERS Safety Report 16084655 (Version 1)
Quarter: 2019Q2

REPORT INFORMATION
  Report Type: Spontaneous
  Country: US (occurrence: US)
  Receive Date: 20190317
  Receipt Date: 20190317
  Transmission Date: 20190711
  Serious: Yes (Disabling, Other)
  Sender: FDA-Public Use
  Company Number: None

PATIENT
  Age: 74 Year
  Sex: Female
  Weight: 91.35 kg

DRUGS (12)
  1. ALPRAZOLAM. [Concomitant]
     Active Substance: ALPRAZOLAM
  2. CETRIXINE [Concomitant]
  3. COQ 10 [Concomitant]
     Active Substance: UBIDECARENONE
  4. TURMERIC [Concomitant]
     Active Substance: HERBALS\TURMERIC
  5. LOSARTAN. [Suspect]
     Active Substance: LOSARTAN
     Indication: HYPERTENSION
     Dosage: ?          QUANTITY:76 TABLET(S);?
     Route: 048
     Dates: start: 20170101, end: 20180708
  6. LISINOPRIL. [Concomitant]
     Active Substance: LISINOPRIL
  7. VENTOLIN HFA [Concomitant]
     Active Substance: ALBUTEROL SULFATE
  8. INSULIN [Concomitant]
     Active Substance: INSULIN NOS
  9. SYNTHROID [Concomitant]
     Active Substance: LEVOTHYROXINE SODIUM
  10. MONTELUKAST [Concomitant]
     Active Substance: MONTELUKAST SODIUM
  11. TRAMODOL [Concomitant]
     Active Substance: TRAMADOL
  12. LANTUS [Concomitant]
     Active Substance: INSULIN GLARGINE

REACTIONS (3)
  - Pain [None]
  - Loss of personal independence in daily activities [None]
  - Intervertebral disc protrusion [None]

NARRATIVE: CASE EVENT DATE: 20170420
